FAERS Safety Report 24403169 (Version 1)
Quarter: 2024Q4

REPORT INFORMATION
  Report Type: Report from Study
  Country: US (occurrence: US)
  Receive Date: 20241007
  Receipt Date: 20241007
  Transmission Date: 20250115
  Serious: No
  Sender: ROCHE
  Company Number: US-ROCHE-3469357

PATIENT
  Age: 77 Year
  Sex: Male
  Weight: 88.0 kg

DRUGS (15)
  1. GAZYVA [Suspect]
     Active Substance: OBINUTUZUMAB
     Indication: Chronic lymphocytic leukaemia
     Dosage: ONCE, DAY 15 CYLE 1
     Route: 042
     Dates: start: 20231122
  2. VENCLEXTA [Suspect]
     Active Substance: VENETOCLAX
     Indication: Chronic lymphocytic leukaemia
     Dosage: 10MG-50MG-100MG, DATE OF TREATMENT: 07/NOV/2023
     Route: 048
     Dates: start: 20231026
  3. BENZONATATE [Concomitant]
     Active Substance: BENZONATATE
     Indication: Cough
     Dosage: TAKE 1 CAPSULE BY MOUTH 3 TIMES A DAY AS NEEDED FOR COUGH. - ORAL
     Route: 048
     Dates: start: 20230115
  4. PROCHLORPERAZINE [Concomitant]
     Active Substance: PROCHLORPERAZINE
     Indication: Nausea
     Dosage: TAKE 1 TABLET BY MOUTH EVERY 6 HOURS AS NEEDED FOR NAUSEA. - ORAL
     Route: 048
     Dates: start: 20231107
  5. CETIRIZINE [Concomitant]
     Active Substance: CETIRIZINE HYDROCHLORIDE
     Dosage: 10 CAPSULES 2 TIMES A DAY
     Route: 048
  6. ACYCLOVIR [Concomitant]
     Active Substance: ACYCLOVIR
     Dosage: TAKE 400 MG BY MOUTH 3 TIMES A DAY. AS NEEDED ORAL
     Route: 048
  7. FINASTERIDE [Concomitant]
     Active Substance: FINASTERIDE
     Dosage: TAKE 1 TABLET BY MOUTH EVERY OTHER DAY - ORAL
     Route: 048
     Dates: start: 20230309
  8. DOXEPIN HYDROCHLORIDE [Concomitant]
     Active Substance: DOXEPIN HYDROCHLORIDE
     Dosage: TAKE 200 MG BY MOUTH DAILY
     Route: 048
  9. TRAZODONE [Concomitant]
     Active Substance: TRAZODONE HYDROCHLORIDE
     Dosage: TAKE 100 MG BY MOUTH AT BEDTIME, - ORAL
     Route: 048
  10. OMEPRAZOLE [Concomitant]
     Active Substance: OMEPRAZOLE
     Dosage: TAKE 40 MG BY MOUTH BEFORE BREAKFAST DAILY,  ORAL
     Route: 048
  11. CARISOPRODOL [Concomitant]
     Active Substance: CARISOPRODOL
     Dosage: TAKE BY MOUTH AS NEEDED. - ORAL
     Route: 048
  12. SODIUM CHLORIDE [Concomitant]
     Active Substance: SODIUM CHLORIDE
     Route: 042
  13. DEXAMETHASONE [Concomitant]
     Active Substance: DEXAMETHASONE
     Route: 042
  14. ACETAMINOPHEN [Concomitant]
     Active Substance: ACETAMINOPHEN
  15. DIPHENHYDRAMINE [Concomitant]
     Active Substance: DIPHENHYDRAMINE
     Route: 042

REACTIONS (6)
  - Swelling [Unknown]
  - Cough [Unknown]
  - Fatigue [Unknown]
  - Infusion related reaction [Unknown]
  - Chest discomfort [Recovered/Resolved]
  - Headache [Recovered/Resolved]

NARRATIVE: CASE EVENT DATE: 20231031
